FAERS Safety Report 5616368-4 (Version None)
Quarter: 2008Q1

REPORT INFORMATION
  Report Type: 
  Country: None (occurrence: None)
  Receive Date: 20080205
  Receipt Date: 20080205
  Transmission Date: 20080703
  Serious: Yes (Other)
  Sender: FDA-Public Use
  Company Number: None

PATIENT
  Sex: Male
  Weight: 86.637 kg

DRUGS (1)
  1. REMICADE [Suspect]
     Indication: RHEUMATOID ARTHRITIS
     Dosage: 3 MG PER KG Q 8 WKS IV
     Route: 042
     Dates: start: 20040501, end: 20070101

REACTIONS (2)
  - GASTRIC MUCOSAL LESION [None]
  - SKIN LESION [None]
